FAERS Safety Report 9983874 (Version 3)
Quarter: 2014Q2

REPORT INFORMATION
  Report Type: Spontaneous
  Country: US (occurrence: US)
  Receive Date: 20140307
  Receipt Date: 20140420
  Transmission Date: 20141212
  Serious: Yes (Other)
  Sender: FDA-Public Use
  Company Number: PHHY2011US18566

PATIENT
  Age: 73 Year
  Sex: Female
  Weight: 61.22 kg

DRUGS (20)
  1. EXELON PATCH [Suspect]
     Indication: DEMENTIA ALZHEIMER^S TYPE
     Dosage: 9.5 MG, QD
     Route: 062
     Dates: start: 20100223, end: 20110304
  2. LYRICA [Suspect]
     Dosage: UNK UKN, UNK
  3. LYRICA [Suspect]
     Dosage: 75 MG, BID
  4. LORAZEPAM [Concomitant]
     Dosage: UNK UKN, UNK
  5. ZANAFLEX [Concomitant]
     Dosage: UNK UKN, UNK
  6. METOPROLOL [Concomitant]
     Dosage: UNK UKN, UNK
  7. MELOXICAM [Concomitant]
     Dosage: UNK UKN, UNK
  8. PENTASA [Concomitant]
     Dosage: UNK UKN, UNK
  9. FLUOXETINE [Concomitant]
     Dosage: UNK UKN, UNK
  10. AMLODIPINE [Concomitant]
     Dosage: UNK UKN, UNK
  11. PRAVASTATIN [Concomitant]
     Dosage: UNK UKN, UNK
  12. ASACOL [Concomitant]
     Dosage: UNK UKN, UNK
  13. B12-VITAMIN [Concomitant]
     Dosage: UNK UKN, UNK
  14. NORVASC [Concomitant]
     Dosage: UNK UKN, UNK
  15. PROTONIX [Concomitant]
     Dosage: UNK UKN, UNK
  16. LIPITOR [Concomitant]
     Dosage: UNK UKN, UNK
  17. PROZAC [Concomitant]
     Dosage: UNK UKN, UNK
  18. ZOFRAN [Concomitant]
     Dosage: UNK UKN, UNK
  19. REMICADE [Concomitant]
     Dosage: UNK UKN, UNK
  20. MIRALAX [Concomitant]
     Dosage: UNK UKN, UNK

REACTIONS (14)
  - Pemphigoid [Recovered/Resolved]
  - Peripheral swelling [Recovered/Resolved]
  - Lichen planus [Recovered/Resolved]
  - Pruritus [Recovered/Resolved]
  - Rash [Recovered/Resolved]
  - Skin hyperpigmentation [Recovered/Resolved]
  - Scab [Recovered/Resolved]
  - Erythema [Recovered/Resolved]
  - Skin exfoliation [Recovered/Resolved]
  - Eczema [Recovered/Resolved]
  - Lichenoid keratosis [Recovered/Resolved]
  - Infection [Recovered/Resolved]
  - Amnesia [Recovered/Resolved]
  - Fatigue [Recovered/Resolved]
